FAERS Safety Report 13050212 (Version 1)
Quarter: 2016Q4

REPORT INFORMATION
  Report Type: Spontaneous
  Country: US (occurrence: US)
  Receive Date: 20161221
  Receipt Date: 20161221
  Transmission Date: 20170207
  Serious: Yes (Hospitalization, Other)
  Sender: FDA-Public Use
  Company Number: US-AUROBINDO-AUR-APL-2016-15377

PATIENT
  Age: 66 Year
  Sex: Female

DRUGS (4)
  1. VANCOMYCIN [Suspect]
     Active Substance: VANCOMYCIN
     Dosage: UNK, INJECTED INTRACAMERALLY IN THE LEFT EYE
     Route: 065
  2. SODIUM HYALURONATE [Concomitant]
     Active Substance: HYALURONATE SODIUM
     Indication: PRODUCT USED FOR UNKNOWN INDICATION
     Dosage: INTRACAMERAL
  3. VANCOMYCIN [Suspect]
     Active Substance: VANCOMYCIN
     Indication: PRODUCT USED FOR UNKNOWN INDICATION
     Dosage: UNK, INJECTED INTRACAMERALLY IN THE RIGHT EYE
     Route: 065
  4. LIDOCAINE. [Concomitant]
     Active Substance: LIDOCAINE
     Indication: PRODUCT USED FOR UNKNOWN INDICATION
     Dosage: UNK, INTRACAMERAL
     Route: 065

REACTIONS (3)
  - Necrotising retinitis [Recovered/Resolved with Sequelae]
  - Glaucoma [Recovered/Resolved with Sequelae]
  - Hypersensitivity vasculitis [Recovered/Resolved with Sequelae]
